FAERS Safety Report 4405710-8 (Version None)
Quarter: 2004Q3

REPORT INFORMATION
  Report Type: 
  Country: None (occurrence: None)
  Receive Date: 20040723
  Receipt Date: 20031121
  Transmission Date: 20050211
  Serious: No
  Sender: FDA-Public Use
  Company Number: US-GLAXOSMITHKLINE-A0440800A

PATIENT
  Age: 76 Year
  Sex: Female

DRUGS (6)
  1. AVANDIA [Suspect]
     Dosage: 8MG PER DAY
     Route: 048
     Dates: start: 20031120
  2. SYNTHROID [Concomitant]
  3. RELAFEN [Concomitant]
  4. ATENOLOL [Concomitant]
  5. CALCIUM [Concomitant]
  6. PEPCID [Concomitant]

REACTIONS (4)
  - NERVOUSNESS [None]
  - PAIN IN EXTREMITY [None]
  - TREMOR [None]
  - VISUAL DISTURBANCE [None]
